FAERS Safety Report 15265231 (Version 1)
Quarter: 2018Q3

REPORT INFORMATION
  Report Type: Spontaneous
  Country: US (occurrence: US)
  Receive Date: 20180810
  Receipt Date: 20180810
  Transmission Date: 20181010
  Serious: No
  Sender: FDA-Public Use
  Company Number: US-MYLANLABS-2018M1059478

PATIENT
  Sex: Male
  Weight: 84 kg

DRUGS (1)
  1. CLONAZEPAM. [Suspect]
     Active Substance: CLONAZEPAM
     Indication: BRUXISM
     Dosage: 2 MG, UNK
     Route: 048

REACTIONS (3)
  - Product availability issue [Unknown]
  - Poor quality sleep [Unknown]
  - Drug ineffective for unapproved indication [Not Recovered/Not Resolved]
